FAERS Safety Report 9934527 (Version 2)
Quarter: 2014Q1

REPORT INFORMATION
  Report Type: Spontaneous
  Country: DK (occurrence: JP)
  Receive Date: 20140228
  Receipt Date: 20140228
  Transmission Date: 20141002
  Serious: Yes (Other)
  Sender: FDA-Public Use
  Company Number: JP-FRI-1000053970

PATIENT
  Age: 70 Year
  Sex: Male

DRUGS (12)
  1. LEXAPRO [Suspect]
     Indication: DEPRESSION
     Dosage: 10 MG
     Route: 048
     Dates: start: 20130502, end: 20131111
  2. LEXAPRO [Suspect]
     Dosage: 10 MG
     Route: 048
     Dates: start: 20131129, end: 20131210
  3. LEXAPRO [Suspect]
     Indication: DEPRESSION
     Dosage: 20 MG
     Route: 048
     Dates: start: 20131112, end: 20131128
  4. LEXAPRO [Suspect]
     Dosage: 10 MG
     Route: 048
     Dates: start: 20131129, end: 20131210
  5. AMARYL [Concomitant]
     Indication: DIABETES MELLITUS
     Dosage: 0.5 MG
     Route: 048
  6. ACTOS [Concomitant]
     Indication: DIABETES MELLITUS
     Dosage: 30 MG
     Route: 048
  7. NESINA [Concomitant]
     Indication: DIABETES MELLITUS
     Dosage: 25 MG
     Route: 048
  8. NU-LOTAN [Concomitant]
     Indication: HYPERTENSION
     Dosage: 50 MG
     Route: 048
  9. REFLEX [Concomitant]
     Indication: DEPRESSION
     Dosage: 15 MG
     Route: 048
     Dates: start: 20131203, end: 20131209
  10. REFLEX [Concomitant]
     Dosage: 30 MG
     Route: 048
     Dates: start: 20131210
  11. MYSLEE [Concomitant]
     Dosage: 10 MG
     Route: 048
     Dates: start: 20130307, end: 20131202
  12. MYSLEE [Concomitant]
     Dosage: 5 MG
     Route: 048
     Dates: start: 20131203

REACTIONS (2)
  - Electrocardiogram QT prolonged [Recovering/Resolving]
  - Ventricular extrasystoles [Recovering/Resolving]
